FAERS Safety Report 17174359 (Version 1)
Quarter: 2019Q4

REPORT INFORMATION
  Report Type: Spontaneous
  Country: FR (occurrence: FR)
  Receive Date: 20191219
  Receipt Date: 20191219
  Transmission Date: 20200122
  Serious: Yes (Other)
  Sender: FDA-Public Use
  Company Number: FR-SUN PHARMACEUTICAL INDUSTRIES LTD-2019RR-231045

PATIENT
  Age: 27 Year
  Sex: Female

DRUGS (2)
  1. PREGABALIN. [Suspect]
     Active Substance: PREGABALIN
     Indication: PRODUCT USED FOR UNKNOWN INDICATION
     Dosage: UNK
     Route: 048
  2. IZALGI 500 MG/25 MG, GELULE [Suspect]
     Active Substance: ACETAMINOPHEN\OPIUM
     Indication: FIBROMYALGIA
     Dosage: UNK
     Route: 048

REACTIONS (1)
  - Tongue oedema [Not Recovered/Not Resolved]

NARRATIVE: CASE EVENT DATE: 2018
